FAERS Safety Report 25818428 (Version 4)
Quarter: 2025Q4

REPORT INFORMATION
  Report Type: Report from Study
  Country: US (occurrence: US)
  Receive Date: 20250918
  Receipt Date: 20251015
  Transmission Date: 20260118
  Serious: Yes (Hospitalization, Other)
  Sender: AMGEN
  Company Number: US-AMGEN-USANI2025181923

PATIENT
  Age: 91 Year
  Sex: Male

DRUGS (3)
  1. TARLATAMAB [Suspect]
     Active Substance: TARLATAMAB
     Indication: Small cell lung cancer
     Dosage: 1 MILLIGRAM, ONE TIME DOSE
     Route: 040
     Dates: start: 20250902
  2. TARLATAMAB [Suspect]
     Active Substance: TARLATAMAB
     Dosage: 10 MILLIGRAM, ONE TIME DOSE
     Route: 040
     Dates: start: 20250909
  3. TARLATAMAB [Suspect]
     Active Substance: TARLATAMAB
     Dosage: 10 MILLIGRAM, ONE TIME DOSE
     Route: 040
     Dates: start: 20250916

REACTIONS (10)
  - Immune effector cell-associated neurotoxicity syndrome [Recovered/Resolved]
  - Immune effector cell-associated neurotoxicity syndrome [Recovered/Resolved]
  - Immune effector cell-associated neurotoxicity syndrome [Unknown]
  - Immune effector cell-associated neurotoxicity syndrome [Unknown]
  - Cytokine release syndrome [Recovered/Resolved]
  - Cytokine release syndrome [Recovered/Resolved]
  - Tachycardia [Recovered/Resolved]
  - Tremor [Recovered/Resolved]
  - Pyrexia [Recovered/Resolved]
  - Clostridium test positive [Recovered/Resolved]

NARRATIVE: CASE EVENT DATE: 20250902
